FAERS Safety Report 5567235-6 (Version None)
Quarter: 2007Q4

REPORT INFORMATION
  Report Type: 
  Country: None (occurrence: None)
  Receive Date: 20071219
  Receipt Date: 20071213
  Transmission Date: 20080405
  Serious: Yes (Hospitalization)
  Sender: FDA-Public Use
  Company Number: JP-BOEHRINGER INGELHEIM PHARMACEUTICALS, INC.-2007-BP-24777NB

PATIENT
  Sex: Female

DRUGS (8)
  1. MICARDIS [Suspect]
     Indication: HYPERTENSION
     Route: 048
     Dates: start: 20061031
  2. AMARYL [Concomitant]
     Route: 048
     Dates: start: 20061031
  3. MELBIN [Concomitant]
     Route: 048
     Dates: start: 20061031, end: 20071101
  4. ALDACTONE [Concomitant]
     Indication: HYPERTENSION
     Route: 048
     Dates: start: 20071001
  5. CALBLOCK [Concomitant]
     Indication: HYPERTENSION
     Route: 048
     Dates: start: 20061226
  6. KINEDAK [Concomitant]
     Route: 048
     Dates: start: 20061031, end: 20071101
  7. LIPITOR [Concomitant]
     Route: 048
     Dates: start: 20061031, end: 20071001
  8. SEIBULE (MIGLITOL) [Concomitant]
     Route: 048
     Dates: start: 20070531, end: 20071101

REACTIONS (1)
  - MYOCARDIAL INFARCTION [None]
